FAERS Safety Report 17102991 (Version 1)
Quarter: 2019Q4

REPORT INFORMATION
  Report Type: Spontaneous
  Country: US (occurrence: US)
  Receive Date: 20191202
  Receipt Date: 20191202
  Transmission Date: 20200122
  Serious: Yes (Other)
  Sender: FDA-Public Use
  Company Number: None

PATIENT
  Age: 51 Year
  Sex: Female
  Weight: 112.5 kg

DRUGS (1)
  1. ORENCIA [Suspect]
     Active Substance: ABATACEPT
     Indication: PSORIATIC ARTHROPATHY
     Dosage: ?          QUANTITY:1 INJECTION(S);OTHER FREQUENCY:ONCE A WEEK;?
     Route: 030

REACTIONS (6)
  - Tooth loss [None]
  - Gingival discomfort [None]
  - Dyspnoea [None]
  - Urinary tract infection [None]
  - Nephrolithiasis [None]
  - Tooth infection [None]

NARRATIVE: CASE EVENT DATE: 20190704
